FAERS Safety Report 14807847 (Version 1)
Quarter: 2018Q2

REPORT INFORMATION
  Report Type: Spontaneous
  Country: BE (occurrence: BE)
  Receive Date: 20180425
  Receipt Date: 20180425
  Transmission Date: 20180711
  Serious: Yes (Other)
  Sender: FDA-Public Use
  Company Number: BE-GILEAD-2017-0309210

PATIENT
  Age: 28 Year
  Sex: Female

DRUGS (4)
  1. METAFOLIN [Concomitant]
  2. DHA [Concomitant]
     Active Substance: DIETARY SUPPLEMENT
  3. VITAMINS NOS [Concomitant]
     Active Substance: VITAMINS
  4. VIREAD [Suspect]
     Active Substance: TENOFOVIR DISOPROXIL FUMARATE
     Indication: CHRONIC HEPATITIS B
     Dosage: 245 UNK, UNK
     Route: 048
     Dates: start: 20171029

REACTIONS (2)
  - Meconium in amniotic fluid [Unknown]
  - Maternal exposure during pregnancy [Recovered/Resolved]

NARRATIVE: CASE EVENT DATE: 20171029
